FAERS Safety Report 8776701 (Version 2)
Quarter: 2012Q4

REPORT INFORMATION
  Report Type: 
  Country: US (occurrence: US)
  Receive Date: 20120905
  Receipt Date: 20121112
  Transmission Date: 20130627
  Serious: Yes (Hospitalization)
  Sender: FDA-Public Use
  Company Number: US-ELI_LILLY_AND_COMPANY-US201209000362

PATIENT
  Age: 59 Year
  Sex: Female

DRUGS (8)
  1. CYMBALTA [Suspect]
     Indication: DEPRESSION
     Dosage: 30 mg, qd
  2. CYMBALTA [Suspect]
     Dosage: 60 mg, qd
  3. CYMBALTA [Suspect]
     Dosage: 80 mg, qd
     Dates: start: 2008, end: 2008
  4. CYMBALTA [Suspect]
     Dosage: 90 mg, qd
     Dates: start: 2008
  5. CYMBALTA [Suspect]
     Dosage: 80 mg, qd
     Dates: start: 2008
  6. SYNTHROID [Concomitant]
  7. CRESTOR [Concomitant]
  8. INDERAL [Concomitant]

REACTIONS (2)
  - Breast swelling [Unknown]
  - Weight increased [Unknown]
